FAERS Safety Report 8168016-X (Version None)
Quarter: 2012Q1

REPORT INFORMATION
  Report Type: 
  Country: None (occurrence: None)
  Receive Date: 20120227
  Receipt Date: 20120213
  Transmission Date: 20120608
  Serious: Yes (Hospitalization)
  Sender: FDA-Public Use
  Company Number: PHEH2012US003724

PATIENT
  Sex: Male
  Weight: 43.6 kg

DRUGS (8)
  1. DOXYCYCLINE [Concomitant]
  2. QUINIDINE HCL [Concomitant]
  3. ACETAMINOPHEN [Concomitant]
  4. CEFTRIAXONE [Concomitant]
  5. ZOFRAN [Concomitant]
  6. QUININE SULFATE [Concomitant]
  7. COARTEM [Suspect]
     Indication: MALARIA
     Dosage: UNK
     Route: 048
     Dates: start: 20110601
  8. LASIX [Concomitant]

REACTIONS (4)
  - WRONG DRUG ADMINISTERED [None]
  - ACIDOSIS [None]
  - MALARIA [None]
  - ACUTE RESPIRATORY DISTRESS SYNDROME [None]
